FAERS Safety Report 8491829 (Version 2)
Quarter: 2013Q2

REPORT INFORMATION
  Report Type: Spontaneous
  Country: US (occurrence: None)
  Receive Date: 20120320
  Receipt Date: 20120627
  Transmission Date: 20140414
  Serious: No
  Sender: FDA-Public Use
  Company Number: US-2011-10859

PATIENT
  Sex: Female

DRUGS (1)
  1. SAMSCA [Suspect]
     Indication: HYPONATRAEMIA
     Dosage: 15 MG MILLIGRAM(S), ORAL, 7.5 MG MILLIGRAM(S), QD, 7.5 MG MILLIGRAM(S), QOD
     Route: 048
     Dates: start: 20111106, end: 20111106

REACTIONS (2)
  - Therapy change [None]
  - WRONG TECHNIQUE IN DRUG USAGE PROCESS [None]
